FAERS Safety Report 20567710 (Version 1)
Quarter: 2022Q1

REPORT INFORMATION
  Report Type: Spontaneous
  Country: US (occurrence: None)
  Receive Date: 20220308
  Receipt Date: 20220308
  Transmission Date: 20220423
  Serious: No
  Sender: FDA-Public Use
  Company Number: None

PATIENT
  Age: 42 Year
  Sex: Female
  Weight: 57.6 kg

DRUGS (7)
  1. BOTOX [Suspect]
     Active Substance: ONABOTULINUMTOXINA
     Indication: Skin wrinkling
     Dosage: OTHER FREQUENCY : 1 TIME;?
     Route: 030
     Dates: start: 20150601, end: 20200925
  2. VALTREX [Concomitant]
     Active Substance: VALACYCLOVIR HYDROCHLORIDE
  3. VITAMINS [Concomitant]
     Active Substance: VITAMINS
  4. collagen powder [Concomitant]
  5. FOLATE SODIUM [Concomitant]
     Active Substance: FOLATE SODIUM
  6. CALCIUM [Concomitant]
     Active Substance: CALCIUM
  7. ubiquinol 100mg [Concomitant]

REACTIONS (5)
  - Dizziness [None]
  - Heart rate increased [None]
  - Malaise [None]
  - Near death experience [None]
  - Impaired driving ability [None]

NARRATIVE: CASE EVENT DATE: 20200925
